FAERS Safety Report 15195420 (Version 2)
Quarter: 2018Q3

REPORT INFORMATION
  Report Type: Report from Study
  Country: BE (occurrence: BE)
  Receive Date: 20180725
  Receipt Date: 20180917
  Transmission Date: 20181010
  Serious: Yes (Other)
  Sender: FDA-Public Use
  Company Number: BE-PFIZER INC-2018232170

PATIENT
  Age: 74 Year
  Sex: Male
  Weight: 93.6 kg

DRUGS (24)
  1. FLUOROURACIL. [Suspect]
     Active Substance: FLUOROURACIL
     Indication: COLORECTAL CANCER METASTATIC
     Dosage: 1 DF, CYCLIC (EVERY TWO WEEKS)
     Route: 042
     Dates: start: 20180327
  2. BEVACIZUMAB. [Suspect]
     Active Substance: BEVACIZUMAB
     Indication: COLORECTAL CANCER METASTATIC
     Dosage: 1 DF, CYCLIC (EVERY TWO WEEKS)
     Route: 042
     Dates: start: 20180327
  3. FINASTERIDE. [Concomitant]
     Active Substance: FINASTERIDE
  4. NEULASTA [Concomitant]
     Active Substance: PEGFILGRASTIM
     Dosage: UNK
     Dates: start: 20180420
  5. BEVACIZUMAB. [Suspect]
     Active Substance: BEVACIZUMAB
     Dosage: 450 MG, CYCLIC (EVERY 2 WEEKS )
     Dates: start: 20180807, end: 20180811
  6. ALPRAZOLAM. [Concomitant]
     Active Substance: ALPRAZOLAM
  7. METOPROLOL. [Concomitant]
     Active Substance: METOPROLOL
     Dosage: UNK
     Dates: start: 20020102
  8. SOLU?MEDROL [Concomitant]
     Active Substance: METHYLPREDNISOLONE SODIUM SUCCINATE
     Dosage: UNK
     Dates: start: 20180327
  9. IRINOTECAN HCL [Suspect]
     Active Substance: IRINOTECAN HYDROCHLORIDE
     Indication: COLORECTAL CANCER METASTATIC
     Dosage: 1 DF, CYCLIC (EVERY TWO WEEKS)
     Route: 042
     Dates: start: 20180327
  10. ALLOPURINOL. [Concomitant]
     Active Substance: ALLOPURINOL
  11. ATROPINE. [Concomitant]
     Active Substance: ATROPINE
     Dosage: UNK
     Dates: start: 20180327
  12. FLUOROURACIL. [Suspect]
     Active Substance: FLUOROURACIL
     Dosage: 4480 MG, CYCLIC (EVERY 2 WEEKS )
     Dates: start: 20180807
  13. LEUCOVORIN /00566701/ [Suspect]
     Active Substance: LEUCOVORIN
     Indication: COLORECTAL CANCER METASTATIC
     Dosage: 1 DF, CYCLIC (EVERY TWO WEEKS)
     Route: 042
     Dates: start: 20180327
  14. LEUCOVORIN /00566701/ [Suspect]
     Active Substance: LEUCOVORIN
     Dosage: 4480 MG, UNK
     Route: 042
     Dates: start: 20180807
  15. AMIODARONE [Concomitant]
     Active Substance: AMIODARONE
     Dosage: UNK
     Dates: start: 20020215
  16. INNOHEP [Concomitant]
     Active Substance: TINZAPARIN SODIUM
  17. AUGMENTIN [Concomitant]
     Active Substance: AMOXICILLIN\CLAVULANATE POTASSIUM
     Dosage: UNK
     Dates: start: 20180126
  18. SIMVASTATINE [Concomitant]
     Active Substance: SIMVASTATIN
  19. ALOXI [Concomitant]
     Active Substance: PALONOSETRON HYDROCHLORIDE
     Dosage: UNK
     Dates: start: 20180327
  20. IRINOTECAN HCL [Suspect]
     Active Substance: IRINOTECAN HYDROCHLORIDE
     Dosage: 288 MG, CYCLIC (EVERY 2 WEEKS )
     Dates: start: 20180807
  21. 1?ALPHA LEO [Concomitant]
     Dosage: UNK
     Dates: start: 199902
  22. L?THYROXINE /00068001/ [Concomitant]
     Active Substance: LEVOTHYROXINE
     Dosage: UNK
     Dates: start: 199812
  23. RIVOTRIL [Concomitant]
     Active Substance: CLONAZEPAM
  24. CIPRALEX [Concomitant]
     Active Substance: ESCITALOPRAM OXALATE
     Dosage: UNK
     Dates: start: 20171017

REACTIONS (8)
  - Anastomotic haemorrhage [Not Recovered/Not Resolved]
  - Neutropenia [Recovered/Resolved]
  - Anaemia [Not Recovered/Not Resolved]
  - Fatigue [Not Recovered/Not Resolved]
  - Diarrhoea [Not Recovered/Not Resolved]
  - Hypotension [Not Recovered/Not Resolved]
  - Shock haemorrhagic [Not Recovered/Not Resolved]
  - Anorectal disorder [Not Recovered/Not Resolved]

NARRATIVE: CASE EVENT DATE: 20180328
